FAERS Safety Report 10014962 (Version 3)
Quarter: 2014Q2

REPORT INFORMATION
  Report Type: Spontaneous
  Country: US (occurrence: US)
  Receive Date: 20140317
  Receipt Date: 20140421
  Transmission Date: 20141212
  Serious: Yes (Life-Threatening, Hospitalization, Disabling, Other)
  Sender: FDA-Public Use
  Company Number: US-009507513-1403USA005057

PATIENT
  Age: 30 Year
  Sex: Female
  Weight: 51.25 kg

DRUGS (1)
  1. NEXPLANON [Suspect]
     Indication: CONTRACEPTION
     Dosage: 1 ROD
     Route: 059
     Dates: start: 201307, end: 20140221

REACTIONS (12)
  - Metastatic choriocarcinoma [Not Recovered/Not Resolved]
  - Unintended pregnancy [Recovered/Resolved]
  - Metastases to lung [Not Recovered/Not Resolved]
  - Hysterectomy [Not Recovered/Not Resolved]
  - Benign hydatidiform mole [Unknown]
  - Tachycardia [Unknown]
  - Uterine dilation and curettage [Unknown]
  - Cervix cerclage procedure [Unknown]
  - Catheter placement [Unknown]
  - Adenomyosis [Unknown]
  - Cervix haemorrhage uterine [Recovered/Resolved]
  - Transfusion [Unknown]
